FAERS Safety Report 9743162 (Version 1)
Quarter: 2013Q4

REPORT INFORMATION
  Report Type: Spontaneous
  Country: US (occurrence: US)
  Receive Date: 20131210
  Receipt Date: 20131210
  Transmission Date: 20140711
  Serious: No
  Sender: FDA-Public Use
  Company Number: US-GILEAD-2009-0024329

PATIENT
  Sex: Female
  Weight: 68.04 kg

DRUGS (22)
  1. LETAIRIS [Suspect]
     Indication: PULMONARY ARTERIAL HYPERTENSION
     Route: 048
     Dates: start: 20090713
  2. REVATIO [Concomitant]
  3. COUMADIN [Concomitant]
  4. LASIX [Concomitant]
  5. SPIRONOLACTONE [Concomitant]
  6. PREDNISONE [Concomitant]
  7. NORVASC [Concomitant]
  8. LYRICA [Concomitant]
  9. PLAQUENIL [Concomitant]
  10. ALEVE [Concomitant]
  11. METHADONE [Concomitant]
  12. ZYPREXA [Concomitant]
  13. IMURAN [Concomitant]
  14. AMBIEN [Concomitant]
  15. REMERON [Concomitant]
  16. BACTRIM DS [Concomitant]
  17. LORTAB [Concomitant]
  18. BUSPAR [Concomitant]
  19. PREVACID [Concomitant]
  20. CALCITRIOL [Concomitant]
  21. POTASSIUM CHLORIDE [Concomitant]
  22. FOLIC ACID [Concomitant]

REACTIONS (1)
  - Abdominal pain upper [Unknown]
